FAERS Safety Report 6454612-4 (Version None)
Quarter: 2009Q4

REPORT INFORMATION
  Report Type: 
  Country: None (occurrence: None)
  Receive Date: 20091124
  Receipt Date: 20091117
  Transmission Date: 20100525
  Serious: Yes (Other)
  Sender: FDA-Public Use
  Company Number: US-BAYER-200916847BCC

PATIENT
  Age: 70 Year
  Sex: Female
  Weight: 59 kg

DRUGS (17)
  1. ALEVE [Suspect]
     Indication: ARTHRALGIA
     Dosage: TOTAL DAILY DOSE: 880 MG  UNIT DOSE: 220 MG
     Route: 048
     Dates: start: 20080101, end: 20080101
  2. ALEVE [Suspect]
     Dosage: TOTAL DAILY DOSE: 220 MG  UNIT DOSE: 220 MG
     Route: 048
  3. CENTRUM SILVER [Concomitant]
     Route: 065
  4. MULTIVITAMIN [Concomitant]
     Route: 065
  5. OSCAL [Concomitant]
     Route: 065
  6. BAYER 81MG [Concomitant]
     Route: 065
  7. NEXIUM [Concomitant]
     Route: 065
  8. TOFRANIL [Concomitant]
     Route: 065
  9. ZETIA [Concomitant]
     Route: 065
  10. LOTENSIN [Concomitant]
     Route: 065
  11. LUNESTA [Concomitant]
     Route: 065
  12. GLUCOPHAGE [Concomitant]
     Route: 065
  13. CYMBALTA [Concomitant]
     Route: 065
  14. BONIVA [Concomitant]
     Route: 065
  15. XALATAN [Concomitant]
     Route: 065
  16. SODIUM CHLORIDE [Concomitant]
     Route: 065
  17. SODIUM CHLORIDE [Concomitant]
     Route: 065

REACTIONS (3)
  - ANAEMIA [None]
  - GASTRIC PERFORATION [None]
  - HAEMATOCHEZIA [None]
